FAERS Safety Report 5369281-4 (Version None)
Quarter: 2007Q2

REPORT INFORMATION
  Report Type: 
  Country: None (occurrence: None)
  Receive Date: 20070625
  Receipt Date: 20070301
  Transmission Date: 20071010
  Serious: No
  Sender: FDA-Public Use
  Company Number: US-ASTRAZENECA-2007UW04016

PATIENT
  Age: 61 Year
  Sex: Female
  Weight: 77.1 kg

DRUGS (4)
  1. CRESTOR [Suspect]
     Indication: BLOOD CHOLESTEROL INCREASED
     Route: 048
     Dates: start: 20070228
  2. LITHIUM CARBONATE [Concomitant]
  3. BONIVA [Concomitant]
  4. PHYTO-ESTOGEN [Concomitant]

REACTIONS (2)
  - ILL-DEFINED DISORDER [None]
  - PAIN [None]
